FAERS Safety Report 10955063 (Version 8)
Quarter: 2016Q3

REPORT INFORMATION
  Report Type: Report from Study
  Country: AR (occurrence: AR)
  Receive Date: 20150325
  Receipt Date: 20160718
  Transmission Date: 20161109
  Serious: Yes (Hospitalization, Other)
  Sender: FDA-Public Use
  Company Number: PHHY2015AR035492

PATIENT
  Age: 65 Year
  Sex: Female

DRUGS (12)
  1. HYDROCHLOROTHIAZIDE. [Concomitant]
     Active Substance: HYDROCHLOROTHIAZIDE
     Indication: PRODUCT USED FOR UNKNOWN INDICATION
     Route: 065
  2. DIOVAN [Suspect]
     Active Substance: VALSARTAN
     Dosage: 1.5 DF(80 OT), QD
     Route: 065
  3. DIOVAN [Suspect]
     Active Substance: VALSARTAN
     Dosage: 2 DF, QD (80 OT)
     Route: 065
  4. DIOVAN [Suspect]
     Active Substance: VALSARTAN
     Dosage: 160 MG, QD (MORNING)
     Route: 048
  5. DIOVAN [Suspect]
     Active Substance: VALSARTAN
     Indication: HYPERTENSION
     Dosage: 1.5 DF(80 UNIT NOT REPORTED), BID (1? TABLET IN THE MORNING AND 1 ? TABLET IN AFTERNOON EVERY 12HRS)
     Route: 065
  6. CARVEDILOL. [Concomitant]
     Active Substance: CARVEDILOL
     Indication: PRODUCT USED FOR UNKNOWN INDICATION
     Route: 065
  7. DIOVAN [Suspect]
     Active Substance: VALSARTAN
     Dosage: 120 MG, QD (ONE TAB AND A HALF DAILY) (80 MG)
     Route: 065
  8. DIOVAN [Suspect]
     Active Substance: VALSARTAN
     Dosage: 2 DF, QD (160 UNITS UNSPECIFIED)
     Route: 065
  9. DIOVAN [Suspect]
     Active Substance: VALSARTAN
     Dosage: 2 DF, QD (160 MG)
     Route: 065
  10. DIOVAN [Suspect]
     Active Substance: VALSARTAN
     Dosage: 1.5 DF ( 80), QD
     Route: 048
  11. DIOVAN [Suspect]
     Active Substance: VALSARTAN
     Dosage: 80 MG, IN THE EVENING
     Route: 065
  12. DIOVAN [Suspect]
     Active Substance: VALSARTAN
     Dosage: 2 DF (80 UNITS NOT REPORTED), Q12H
     Route: 065

REACTIONS (14)
  - Headache [Recovering/Resolving]
  - Fall [Unknown]
  - Spinal disorder [Unknown]
  - Memory impairment [Recovering/Resolving]
  - Hypertensive crisis [Recovering/Resolving]
  - Feeling abnormal [Recovering/Resolving]
  - Gait disturbance [Recovering/Resolving]
  - Blood pressure increased [Recovering/Resolving]
  - Spinal fracture [Recovering/Resolving]
  - Hip fracture [Recovering/Resolving]
  - Nervousness [Recovering/Resolving]
  - Wrong technique in product usage process [Unknown]
  - Osteoarthritis [Unknown]
  - Joint injury [Recovering/Resolving]

NARRATIVE: CASE EVENT DATE: 201110
